FAERS Safety Report 17754562 (Version 3)
Quarter: 2022Q2

REPORT INFORMATION
  Report Type: Spontaneous
  Country: US (occurrence: US)
  Receive Date: 20200507
  Receipt Date: 20220627
  Transmission Date: 20220720
  Serious: Yes (Hospitalization, Other)
  Sender: FDA-Public Use
  Company Number: US-009507513-1908USA010272

PATIENT
  Sex: Male

DRUGS (33)
  1. ZOSTAVAX [Suspect]
     Active Substance: VARICELLA-ZOSTER VIRUS STRAIN OKA/MERCK LIVE ANTIGEN
     Indication: Prophylaxis
     Dosage: .65 MILLILITER
     Route: 058
     Dates: start: 20141007
  2. STERILE DILUENT (WATER) [Suspect]
     Active Substance: WATER
     Indication: Prophylaxis
     Dosage: 0.65 MILLILITER
     Route: 058
     Dates: start: 20141007, end: 20141007
  3. PNEUMOVAX 23 [Suspect]
     Active Substance: PNEUMOCOCCAL VACCINE, POLYVALENT 23
     Indication: Prophylaxis
     Dosage: .5 MILLILITER
     Route: 030
     Dates: start: 20141007
  4. HAVRIX [Concomitant]
     Active Substance: HEPATITIS A VIRUS STRAIN HM175 ANTIGEN (FORMALDEHYDE INACTIVATED)
     Indication: Prophylaxis
     Dosage: 1.0 MILLILITER; STRENGTH: 1440 U/ML VIAL
     Route: 030
     Dates: start: 20141007, end: 20141007
  5. HYDROXYZINE HYDROCHLORIDE [Concomitant]
     Active Substance: HYDROXYZINE HYDROCHLORIDE
     Indication: Pruritus
     Dosage: 25 MG, UNK
     Dates: start: 201312, end: 201502
  6. XOPENEX [Concomitant]
     Active Substance: LEVALBUTEROL HYDROCHLORIDE
     Indication: Asthma
     Dosage: 15 G, UNK
     Dates: start: 201201, end: 201501
  7. GENERLAC [Concomitant]
     Active Substance: LACTULOSE
     Indication: Constipation
     Dosage: 15 ML SOLUTION, UNK
     Dates: start: 201201, end: 201502
  8. METHYLPREDNISOLONE [Concomitant]
     Active Substance: METHYLPREDNISOLONE
     Indication: Inflammation
     Dosage: 4 MG, UNK
     Dates: start: 201307, end: 201412
  9. OPANA [Concomitant]
     Active Substance: OXYMORPHONE HYDROCHLORIDE
     Indication: Analgesic therapy
     Dosage: 30 MG, UNK
     Dates: start: 201201, end: 201412
  10. TOPIRAMATE [Concomitant]
     Active Substance: TOPIRAMATE
     Indication: Analgesic therapy
     Dosage: 50 MG, UNK
     Dates: start: 201404, end: 201503
  11. TOPIRAMATE [Concomitant]
     Active Substance: TOPIRAMATE
     Indication: Seizure
  12. VALIUM [Concomitant]
     Active Substance: DIAZEPAM
     Indication: Anxiety
     Dosage: 10 MG, UNK
     Dates: start: 201302, end: 201502
  13. NEXIUM [Concomitant]
     Active Substance: ESOMEPRAZOLE MAGNESIUM
     Indication: Gastrooesophageal reflux disease
     Dosage: 40 MG, UNK
     Dates: start: 201205, end: 201501
  14. STALEVO [Concomitant]
     Active Substance: CARBIDOPA\ENTACAPONE\LEVODOPA
     Indication: Parkinson^s disease
     Dosage: UNK
     Route: 048
     Dates: start: 201108, end: 201501
  15. CITALOPRAM [Concomitant]
     Active Substance: CITALOPRAM HYDROBROMIDE
     Indication: Depression
     Dosage: 20 MG, UNK
     Dates: start: 201112, end: 201503
  16. ROPINIROLE [Concomitant]
     Active Substance: ROPINIROLE
     Indication: Restless legs syndrome
     Dosage: 1 MG, UNK
     Dates: start: 201210, end: 201501
  17. AMLODIPINE BESYLATE [Concomitant]
     Active Substance: AMLODIPINE BESYLATE
     Indication: Chest pain
     Dosage: 10 MG, UNK
     Dates: start: 201201, end: 201502
  18. HYDROCHLOROTHIAZIDE\LISINOPRIL [Concomitant]
     Active Substance: HYDROCHLOROTHIAZIDE\LISINOPRIL
     Indication: Hypertension
     Dosage: 20-25 MG, UNK
     Dates: start: 201201, end: 201501
  19. MIRALAX [Concomitant]
     Active Substance: POLYETHYLENE GLYCOL 3350
     Indication: Constipation
     Dosage: 527 MG, UNK
     Dates: start: 201201, end: 201501
  20. TRICOR [Concomitant]
     Active Substance: FENOFIBRATE
     Indication: Blood cholesterol abnormal
     Dosage: 145 MG, UNK
     Dates: start: 201201, end: 201501
  21. FUROSEMIDE [Concomitant]
     Active Substance: FUROSEMIDE
     Indication: Diuretic therapy
     Dosage: 20 MG, UNK
     Dates: start: 201310, end: 201501
  22. TAMSULOSIN HYDROCHLORIDE [Concomitant]
     Active Substance: TAMSULOSIN HYDROCHLORIDE
     Indication: Benign prostatic hyperplasia
     Dosage: 0.4 MG, UNK
     Dates: start: 201201
  23. NEURONTIN [Concomitant]
     Active Substance: GABAPENTIN
     Indication: Neuralgia
     Dosage: 800 MG, UNK
     Dates: start: 201201, end: 201503
  24. NEURONTIN [Concomitant]
     Active Substance: GABAPENTIN
     Indication: Seizure
  25. KLOR-CON [Concomitant]
     Active Substance: POTASSIUM CHLORIDE
     Indication: Blood potassium decreased
     Dosage: 10 MILLIEQUIVALENT, UNK
     Dates: start: 201201, end: 201501
  26. NORCO [Concomitant]
     Active Substance: ACETAMINOPHEN\HYDROCODONE BITARTRATE
     Indication: Pain
     Dosage: 10-325 (UNITS NOT REPORTED), UNK
     Dates: start: 201203, end: 201501
  27. SKELAXIN [Concomitant]
     Active Substance: METAXALONE
     Indication: Analgesic therapy
     Dosage: 800 MG, UNK
     Dates: start: 201201, end: 201503
  28. CYMBALTA [Concomitant]
     Active Substance: DULOXETINE HYDROCHLORIDE
     Indication: Neuralgia
     Dosage: DOSAGE 60 MG AND 30 MG, UNK
     Dates: start: 201112, end: 201501
  29. CYMBALTA [Concomitant]
     Active Substance: DULOXETINE HYDROCHLORIDE
     Indication: Antidepressant therapy
  30. AMOXICILLIN [Concomitant]
     Active Substance: AMOXICILLIN
     Indication: Antibiotic therapy
     Dosage: 500 MG, UNK
     Dates: start: 201205, end: 201412
  31. ADVAIR HFA [Concomitant]
     Active Substance: FLUTICASONE PROPIONATE\SALMETEROL XINAFOATE
     Indication: Asthma
     Dosage: 250-50 MCG, UNK
     Dates: start: 201210, end: 201410
  32. ADVAIR HFA [Concomitant]
     Active Substance: FLUTICASONE PROPIONATE\SALMETEROL XINAFOATE
     Indication: Chronic obstructive pulmonary disease
  33. MYRBETRIQ [Concomitant]
     Active Substance: MIRABEGRON
     Indication: Hypertonic bladder
     Dosage: 50 MG, UNK
     Dates: start: 201309, end: 201410

REACTIONS (8)
  - Pneumonia [Unknown]
  - Herpes zoster [Unknown]
  - Neurosurgery [Unknown]
  - Cyst [Unknown]
  - Fibromyalgia [Unknown]
  - Psoriasis [Unknown]
  - Labelled drug-drug interaction issue [Unknown]
  - Hypersensitivity [Unknown]

NARRATIVE: CASE EVENT DATE: 20140101
